FAERS Safety Report 4776762-0 (Version None)
Quarter: 2005Q3

REPORT INFORMATION
  Report Type: 
  Country: None (occurrence: None)
  Receive Date: 20050914
  Receipt Date: 20050907
  Transmission Date: 20060218
  Serious: Yes (Life-Threatening, Other)
  Sender: FDA-Public Use
  Company Number: US_0508121096

PATIENT
  Age: 11 Year
  Sex: Male

DRUGS (2)
  1. STRATTERA [Suspect]
     Indication: ATTENTION DEFICIT/HYPERACTIVITY DISORDER
     Dosage: 25 MG
     Dates: start: 20050507, end: 20050610
  2. CLONIDINE [Concomitant]

REACTIONS (11)
  - ABNORMAL BEHAVIOUR [None]
  - ANGER [None]
  - FEELING ABNORMAL [None]
  - FIGHT IN SCHOOL [None]
  - HALLUCINATION, AUDITORY [None]
  - IMPULSIVE BEHAVIOUR [None]
  - INSOMNIA [None]
  - PERFORMANCE STATUS DECREASED [None]
  - PERSONALITY CHANGE [None]
  - PYROMANIA [None]
  - SUICIDE ATTEMPT [None]
